FAERS Safety Report 5307332-3 (Version None)
Quarter: 2007Q2

REPORT INFORMATION
  Report Type: 
  Country: None (occurrence: None)
  Receive Date: 20070425
  Receipt Date: 20070418
  Transmission Date: 20071010
  Serious: Yes (Life-Threatening, Hospitalization, Disabling)
  Sender: FDA-Public Use
  Company Number: US-MERCK-0703USA00959

PATIENT
  Age: 10 Year
  Sex: Male

DRUGS (2)
  1. SINGULAIR [Suspect]
     Indication: HYPERSENSITIVITY
     Route: 048
     Dates: start: 20060225, end: 20060303
  2. BENADRYL [Concomitant]
     Route: 065

REACTIONS (2)
  - HEPATIC FAILURE [None]
  - JAUNDICE [None]
